FAERS Safety Report 7230843-0 (Version None)
Quarter: 2011Q1

REPORT INFORMATION
  Report Type: 
  Country: None (occurrence: None)
  Receive Date: 20110107
  Receipt Date: 20101227
  Transmission Date: 20110831
  Serious: Yes (Hospitalization)
  Sender: FDA-Public Use
  Company Number: 024568

PATIENT
  Sex: Female

DRUGS (29)
  1. ZELITREX /01269701/ [Concomitant]
  2. DOXORUBICINE [Concomitant]
  3. RIVOTRIL [Concomitant]
  4. KEPPRA [Suspect]
     Dosage: (250 MG BID INTRAVENOUS), (500 MG TID INTRAVENOUS), (500 MG BID INTRAVENOUS)
     Route: 042
     Dates: start: 20101023, end: 20101102
  5. KEPPRA [Suspect]
     Dosage: (250 MG BID INTRAVENOUS), (500 MG TID INTRAVENOUS), (500 MG BID INTRAVENOUS)
     Route: 042
     Dates: start: 20101103, end: 20101119
  6. KEPPRA [Suspect]
     Dosage: (250 MG BID INTRAVENOUS), (500 MG TID INTRAVENOUS), (500 MG BID INTRAVENOUS)
     Route: 042
     Dates: start: 20101120, end: 20101125
  7. VANCOMYCIN [Suspect]
     Indication: SEPTIC SHOCK
     Dosage: (750 MG INTRAVENOUS)
     Route: 042
     Dates: start: 20101111, end: 20101119
  8. VANCOMYCIN [Concomitant]
  9. CANCIDAS [Suspect]
     Indication: BRONCHOPULMONARY ASPERGILLOSIS
     Dosage: (50 MG INTRAVENOUS)
     Route: 042
     Dates: start: 20101102, end: 20101124
  10. VINCRISTINE [Concomitant]
  11. VALIUM [Concomitant]
  12. PREDNISONE [Concomitant]
  13. ETOPOSIDE [Concomitant]
  14. INTERFERON ALFA [Concomitant]
  15. CYCLOPHOSPHAMIDE [Concomitant]
  16. BACTRIM [Suspect]
     Indication: PROPHYLAXIS
     Dosage: (ONE AMPOULE DAILY INTRAVENOUS), (3 AMPOULES INTRAVENOUS), (3 AMPOULES DAILY INTRAVENOUS)
     Route: 042
     Dates: start: 20101029, end: 20101110
  17. BACTRIM [Suspect]
     Indication: PNEUMOCYSTIS JIROVECI INFECTION
     Dosage: (ONE AMPOULE DAILY INTRAVENOUS), (3 AMPOULES INTRAVENOUS), (3 AMPOULES DAILY INTRAVENOUS)
     Route: 042
     Dates: start: 20101029, end: 20101110
  18. BACTRIM [Suspect]
     Indication: PROPHYLAXIS
     Dosage: (ONE AMPOULE DAILY INTRAVENOUS), (3 AMPOULES INTRAVENOUS), (3 AMPOULES DAILY INTRAVENOUS)
     Route: 042
     Dates: start: 20101112, end: 20101124
  19. BACTRIM [Suspect]
     Indication: PNEUMOCYSTIS JIROVECI INFECTION
     Dosage: (ONE AMPOULE DAILY INTRAVENOUS), (3 AMPOULES INTRAVENOUS), (3 AMPOULES DAILY INTRAVENOUS)
     Route: 042
     Dates: start: 20101112, end: 20101124
  20. BACTRIM [Suspect]
     Indication: PROPHYLAXIS
     Dosage: (ONE AMPOULE DAILY INTRAVENOUS), (3 AMPOULES INTRAVENOUS), (3 AMPOULES DAILY INTRAVENOUS)
     Route: 042
     Dates: end: 20101028
  21. BACTRIM [Suspect]
     Indication: PNEUMOCYSTIS JIROVECI INFECTION
     Dosage: (ONE AMPOULE DAILY INTRAVENOUS), (3 AMPOULES INTRAVENOUS), (3 AMPOULES DAILY INTRAVENOUS)
     Route: 042
     Dates: end: 20101028
  22. AMIKLIN /00391001/ [Concomitant]
  23. INVANZ [Concomitant]
  24. GARDENAL /00023201/ [Concomitant]
  25. MERONEM /01250501/ (MERONEM ) (NOT SPECIFIED) [Suspect]
     Indication: PNEUMONIA KLEBSIELLA
     Dosage: (1 G TID INTRAVENOUS), (500 MG TID INTRAVENOUS)
     Route: 042
     Dates: start: 20101103, end: 20101110
  26. MERONEM /01250501/ (MERONEM ) (NOT SPECIFIED) [Suspect]
     Indication: PNEUMONIA KLEBSIELLA
     Dosage: (1 G TID INTRAVENOUS), (500 MG TID INTRAVENOUS)
     Route: 042
     Dates: start: 20101111, end: 20101121
  27. ZIDOVUDINE [Concomitant]
  28. TIENAM [Concomitant]
  29. CYMEVAN /00784202/ [Concomitant]

REACTIONS (19)
  - OEDEMA PERIPHERAL [None]
  - APLASIA [None]
  - AGITATION [None]
  - DIARRHOEA [None]
  - CYTOMEGALOVIRUS COLITIS [None]
  - DIALYSIS [None]
  - OVERDOSE [None]
  - DERMATITIS EXFOLIATIVE [None]
  - PRURITUS [None]
  - ACUTE RESPIRATORY FAILURE [None]
  - RENAL FAILURE ACUTE [None]
  - BRONCHOPULMONARY ASPERGILLOSIS [None]
  - SEPTIC SHOCK [None]
  - LUNG DISORDER [None]
  - HISTIOCYTOSIS HAEMATOPHAGIC [None]
  - STATUS EPILEPTICUS [None]
  - PNEUMOCYSTIS JIROVECI PNEUMONIA [None]
  - KLEBSIELLA INFECTION [None]
  - ENCEPHALOPATHY [None]
